FAERS Safety Report 19237721 (Version 1)
Quarter: 2021Q2

REPORT INFORMATION
  Report Type: Spontaneous
  Country: GB (occurrence: GB)
  Receive Date: 20210510
  Receipt Date: 20210510
  Transmission Date: 20210717
  Serious: Yes (Disabling, Other)
  Sender: FDA-Public Use
  Company Number: GB-ACCORD-224424

PATIENT
  Age: 46 Year
  Sex: Female
  Weight: 96.61 kg

DRUGS (2)
  1. LYMECYCLINE [Concomitant]
     Active Substance: LYMECYCLINE
     Indication: ILL-DEFINED DISORDER
  2. FLUOXETINE [Suspect]
     Active Substance: FLUOXETINE HYDROCHLORIDE
     Indication: DEPRESSION
     Dosage: ONE A DAY
     Dates: start: 20170805

REACTIONS (1)
  - Urticarial vasculitis [Not Recovered/Not Resolved]
